FAERS Safety Report 10077783 (Version 1)
Quarter: 2014Q2

REPORT INFORMATION
  Report Type: Spontaneous
  Country: US (occurrence: US)
  Receive Date: 20140414
  Receipt Date: 20140414
  Transmission Date: 20141212
  Serious: No
  Sender: FDA-Public Use
  Company Number: US-009507513-1404USA007469

PATIENT
  Sex: Female

DRUGS (3)
  1. PREGNYL [Suspect]
     Indication: IN VITRO FERTILISATION
     Dosage: INTRAMUSCULAR URINARY HCG
     Route: 030
  2. MENOTROPINS [Suspect]
     Indication: IN VITRO FERTILISATION
  3. GANIRELIX ACETATE [Suspect]
     Indication: IN VITRO FERTILISATION

REACTIONS (1)
  - Ovarian hyperstimulation syndrome [Recovered/Resolved]
